FAERS Safety Report 5288206-3 (Version None)
Quarter: 2007Q2

REPORT INFORMATION
  Report Type: 
  Country: None (occurrence: None)
  Receive Date: 20070402
  Receipt Date: 20070402
  Transmission Date: 20071010
  Serious: No
  Sender: FDA-Public Use
  Company Number: None

PATIENT
  Sex: Female

DRUGS (2)
  1. GENERIC ORTHO NOVUM 7-7-7 [Suspect]
     Indication: ORAL CONTRACEPTION
     Dosage: ONCE DAILY DAILY PO
     Route: 048
     Dates: start: 20061127, end: 20070122
  2. ORTHO TRI-CYCLEN LO [Suspect]
     Indication: ORAL CONTRACEPTION
     Dosage: ONCE DAILY DAILY PO
     Route: 048
     Dates: start: 20070201, end: 20070309

REACTIONS (5)
  - HEADACHE [None]
  - IRRITABILITY [None]
  - NAUSEA [None]
  - PHARMACEUTICAL PRODUCT COMPLAINT [None]
  - VOMITING [None]
